FAERS Safety Report 7571428-6 (Version None)
Quarter: 2011Q2

REPORT INFORMATION
  Report Type: 
  Country: None (occurrence: None)
  Receive Date: 20110623
  Receipt Date: 20110623
  Transmission Date: 20111010
  Serious: No
  Sender: FDA-Public Use
  Company Number: None

PATIENT
  Age: 77 Year
  Sex: Male
  Weight: 69.4003 kg

DRUGS (1)
  1. PRADAXA [Suspect]
     Dosage: 150 MG BID PO
     Route: 048
     Dates: start: 20110501, end: 20110601

REACTIONS (3)
  - DRUG INEFFECTIVE [None]
  - MIGRAINE [None]
  - CONDITION AGGRAVATED [None]
